FAERS Safety Report 9516475 (Version 1)
Quarter: 2013Q3

REPORT INFORMATION
  Report Type: Spontaneous
  Country: BR (occurrence: BR)
  Receive Date: 20130911
  Receipt Date: 20130911
  Transmission Date: 20140515
  Serious: Yes (Hospitalization, Other)
  Sender: FDA-Public Use
  Company Number: BR-PFIZER INC-2013259468

PATIENT
  Sex: Male

DRUGS (7)
  1. ATENOLOL [Suspect]
     Dosage: UNK
     Route: 065
     Dates: start: 2010, end: 20130723
  2. CLOPIDOGREL [Suspect]
     Indication: ANTIPLATELET THERAPY
     Dosage: 75 MG, 1X/DAY
     Route: 065
     Dates: start: 2010, end: 20130819
  3. SELOZOK [Suspect]
     Dosage: 50 MG, 1X/DAY
     Route: 048
     Dates: start: 20130724
  4. BRILINTA [Suspect]
     Indication: ANTIPLATELET THERAPY
     Dosage: 90 MG, 2X/DAY
     Route: 048
     Dates: start: 20130819
  5. ENALAPRIL [Suspect]
     Dosage: 5 MG, 1X/DAY
     Route: 065
     Dates: start: 20130724, end: 20130829
  6. ASA [Concomitant]
     Dosage: TWO TIMES A DAY
     Route: 065
     Dates: start: 2010
  7. PANTOPRAZOLE [Concomitant]
     Indication: PROPHYLAXIS
     Dosage: DAILY
     Route: 065
     Dates: start: 20130724

REACTIONS (4)
  - Myocardial infarction [Recovered/Resolved]
  - Platelet aggregation abnormal [Unknown]
  - Thrombosis [Not Recovered/Not Resolved]
  - Dysgeusia [Not Recovered/Not Resolved]
